FAERS Safety Report 9568409 (Version 2)
Quarter: 2013Q3

REPORT INFORMATION
  Report Type: Spontaneous
  Country: US (occurrence: US)
  Receive Date: 20130930
  Receipt Date: 20130930
  Transmission Date: 20140515
  Serious: No
  Sender: FDA-Public Use
  Company Number: US-AMGEN-USASP2013050012

PATIENT
  Age: 58 Year
  Sex: Male

DRUGS (2)
  1. ENBREL [Suspect]
     Indication: PSORIATIC ARTHROPATHY
     Dosage: 50 MG, QWK
     Route: 065
     Dates: start: 20130430, end: 201305
  2. METHOTREXATE [Concomitant]
     Dosage: 20 MG, QWK

REACTIONS (8)
  - Cough [Recovered/Resolved]
  - Ear pain [Not Recovered/Not Resolved]
  - Vertigo [Not Recovered/Not Resolved]
  - Local swelling [Not Recovered/Not Resolved]
  - Dysphonia [Not Recovered/Not Resolved]
  - Oropharyngitis fungal [Recovered/Resolved]
  - Herpes zoster oticus [Recovered/Resolved]
  - Nasopharyngitis [Recovered/Resolved]
